FAERS Safety Report 24141806 (Version 1)
Quarter: 2024Q3

REPORT INFORMATION
  Report Type: Spontaneous
  Country: FR (occurrence: FR)
  Receive Date: 20240726
  Receipt Date: 20240726
  Transmission Date: 20241016
  Serious: Yes (Life-Threatening, Hospitalization)
  Sender: ORGANON
  Company Number: None

PATIENT
  Age: 60 Year
  Sex: Female
  Weight: 72 kg

DRUGS (4)
  1. MIRTAZAPINE [Suspect]
     Active Substance: MIRTAZAPINE
     Dosage: 405 MILLIGRAM, ONCE
     Route: 048
     Dates: start: 20240705
  2. ACETAMINOPHEN\OPIUM [Suspect]
     Active Substance: ACETAMINOPHEN\OPIUM
     Dosage: 16 DOSAGE FORM, ONCE (TOTAL)
     Route: 048
     Dates: start: 20240705
  3. TRIMEPRAZINE [Suspect]
     Active Substance: TRIMEPRAZINE
     Dosage: 30 MILLILITER, ONCE (TOTAL)
     Route: 048
     Dates: start: 20240705
  4. RIVOTRIL [Suspect]
     Active Substance: CLONAZEPAM
     Dosage: 50 MILLIGRAM, ONCE (TOTAL)
     Route: 048
     Dates: start: 20240705

REACTIONS (3)
  - Coma [Recovered/Resolved]
  - Torsade de pointes [Recovered/Resolved]
  - Poisoning deliberate [Recovered/Resolved]

NARRATIVE: CASE EVENT DATE: 20240705
